FAERS Safety Report 24578201 (Version 3)
Quarter: 2025Q1

REPORT INFORMATION
  Report Type: Report from Study
  Country: FR (occurrence: FR)
  Receive Date: 20241104
  Receipt Date: 20250327
  Transmission Date: 20250409
  Serious: Yes (Life-Threatening, Hospitalization, Other)
  Sender: ABBVIE
  Company Number: None

PATIENT
  Age: 51 Year
  Sex: Male
  Weight: 48 kg

DRUGS (3)
  1. BOTOX [Suspect]
     Active Substance: ONABOTULINUMTOXINA
     Indication: Product used for unknown indication
     Route: 030
     Dates: start: 20240823, end: 20240823
  2. BOTOX [Suspect]
     Active Substance: ONABOTULINUMTOXINA
     Indication: Product used for unknown indication
     Route: 030
     Dates: start: 20240823, end: 20240823
  3. BOTOX [Suspect]
     Active Substance: ONABOTULINUMTOXINA
     Indication: Product used for unknown indication
     Route: 030
     Dates: start: 20240823, end: 20240823

REACTIONS (19)
  - Muscle fatigue [Recovering/Resolving]
  - Eyelid ptosis [Recovering/Resolving]
  - Dysphagia [Recovering/Resolving]
  - Respiratory disorder [Recovering/Resolving]
  - Gait disturbance [Recovering/Resolving]
  - Drug hypersensitivity [Unknown]
  - Motor dysfunction [Recovering/Resolving]
  - Aspiration [Recovering/Resolving]
  - Product administered by wrong person [Unknown]
  - Joint range of motion decreased [Recovering/Resolving]
  - Myalgia [Unknown]
  - Motor dysfunction [Unknown]
  - Mastication disorder [Recovering/Resolving]
  - Asthenia [Recovering/Resolving]
  - Toxicity to various agents [Unknown]
  - Amimia [Unknown]
  - Dysphagia [Unknown]
  - Respiratory symptom [Not Recovered/Not Resolved]
  - Asphyxia [Unknown]

NARRATIVE: CASE EVENT DATE: 20240101
